FAERS Safety Report 4269246-X (Version None)
Quarter: 2004Q1

REPORT INFORMATION
  Report Type: 
  Country: None (occurrence: None)
  Receive Date: 20040113
  Receipt Date: 20040105
  Transmission Date: 20041129
  Serious: Yes (Hospitalization)
  Sender: FDA-Public Use
  Company Number: US-BRISTOL-MYERS SQUIBB COMPANY-12468260

PATIENT
  Age: 52 Year
  Sex: Male
  Weight: 82 kg

DRUGS (6)
  1. TAXOL [Suspect]
     Indication: OESOPHAGEAL CARCINOMA
     Route: 042
     Dates: start: 20031210, end: 20031210
  2. CARBOPLATIN [Suspect]
     Indication: OESOPHAGEAL CARCINOMA
     Route: 042
     Dates: start: 20031210, end: 20031210
  3. FLUOROURACIL [Suspect]
     Indication: OESOPHAGEAL CARCINOMA
     Dosage: 466 MG X 7 DAY
     Route: 042
     Dates: start: 20031210, end: 20031210
  4. PRILOSEC [Concomitant]
     Indication: GASTROOESOPHAGEAL REFLUX DISEASE
  5. VITAMINS MULTIPLE [Concomitant]
     Indication: VITAMIN SUPPLEMENTATION
  6. RADIATION THERAPY [Concomitant]

REACTIONS (9)
  - APHTHOUS STOMATITIS [None]
  - BLOOD PRESSURE DECREASED [None]
  - DEHYDRATION [None]
  - EATING DISORDER [None]
  - HYPONATRAEMIA [None]
  - MUCOSAL INFLAMMATION [None]
  - ORAL PAIN [None]
  - PROCTALGIA [None]
  - TACHYCARDIA [None]
